FAERS Safety Report 20478377 (Version 1)
Quarter: 2022Q1

REPORT INFORMATION
  Report Type: Spontaneous
  Country: FR (occurrence: FR)
  Receive Date: 20220216
  Receipt Date: 20220216
  Transmission Date: 20220424
  Serious: Yes (Other)
  Sender: FDA-Public Use
  Company Number: FR-AFSSAPS-PP20220131

PATIENT
  Age: 90 Year
  Sex: Female
  Weight: 37 kg

DRUGS (2)
  1. ESCITALOPRAM OXALATE [Interacting]
     Active Substance: ESCITALOPRAM OXALATE
     Indication: Major depression
     Dosage: UNK
     Route: 048
  2. LOVENOX [Interacting]
     Active Substance: ENOXAPARIN SODIUM
     Indication: Thrombosis prophylaxis
     Dosage: 4000 INTERNATIONAL UNIT, ONCE A DAY
     Route: 058
     Dates: start: 20211125, end: 20211222

REACTIONS (1)
  - Subcutaneous haematoma [Not Recovered/Not Resolved]

NARRATIVE: CASE EVENT DATE: 20211216
